FAERS Safety Report 11745823 (Version 1)
Quarter: 2015Q4

REPORT INFORMATION
  Report Type: Spontaneous
  Country: US (occurrence: None)
  Receive Date: 20151116
  Receipt Date: 20151116
  Transmission Date: 20160304
  Serious: Yes (Other)
  Sender: FDA-Public Use
  Company Number: None

PATIENT
  Age: 9 Year
  Sex: Female
  Weight: 31.75 kg

DRUGS (1)
  1. GUANFACINE HCL GUANFACINE HCL 3MG WHOLESALE CORPORATION COSTCO [Suspect]
     Active Substance: GUANFACINE HYDROCHLORIDE
     Indication: ATTENTION DEFICIT/HYPERACTIVITY DISORDER
     Dosage: 1 PILL
     Route: 048
     Dates: start: 20151101, end: 20151112

REACTIONS (5)
  - Product substitution issue [None]
  - Emotional disorder [None]
  - Anger [None]
  - Impulsive behaviour [None]
  - Aggression [None]

NARRATIVE: CASE EVENT DATE: 20151112
